FAERS Safety Report 4378141-7 (Version None)
Quarter: 2004Q2

REPORT INFORMATION
  Report Type: 
  Country: None (occurrence: None)
  Receive Date: 20040616
  Receipt Date: 20040531
  Transmission Date: 20050107
  Serious: Yes (Hospitalization, Other)
  Sender: FDA-Public Use
  Company Number: PHEH2004US06051

PATIENT
  Age: 52 Year
  Sex: Male

DRUGS (7)
  1. DIOVAN [Suspect]
     Indication: MALIGNANT HYPERTENSION
     Dosage: 160 MG, QD
     Route: 048
  2. DIOVAN [Suspect]
     Dosage: 240 MG, QD
     Route: 048
  3. VERELAN [Concomitant]
  4. ZESTRIL [Concomitant]
  5. HYTRIN [Concomitant]
     Dosage: 10 MG, BID
  6. PAXIL [Concomitant]
  7. DIOVAN [Suspect]
     Route: 048

REACTIONS (5)
  - BLOOD GLUCOSE INCREASED [None]
  - CHOLECYSTECTOMY [None]
  - DIABETES MELLITUS NON-INSULIN-DEPENDENT [None]
  - HYPERTENSION [None]
  - PANCREATITIS [None]
